FAERS Safety Report 21224798 (Version 1)
Quarter: 2022Q3

REPORT INFORMATION
  Report Type: Spontaneous
  Country: US (occurrence: US)
  Receive Date: 20220817
  Receipt Date: 20220817
  Transmission Date: 20221027
  Serious: No
  Sender: FDA-Public Use
  Company Number: US-OTSUKA-2022_011491

PATIENT
  Sex: Female
  Weight: 58.97 kg

DRUGS (3)
  1. ABILIFY [Suspect]
     Active Substance: ARIPIPRAZOLE
     Indication: Bipolar I disorder
     Dosage: PROBABLY 10 MG OR 20 MG
     Route: 065
  2. ABILIFY [Suspect]
     Active Substance: ARIPIPRAZOLE
     Indication: Depression
  3. ABILIFY [Suspect]
     Active Substance: ARIPIPRAZOLE
     Indication: Paranoia

REACTIONS (7)
  - Sleep deficit [Not Recovered/Not Resolved]
  - Gingival disorder [Not Recovered/Not Resolved]
  - Balance disorder [Not Recovered/Not Resolved]
  - Eye irritation [Not Recovered/Not Resolved]
  - Migraine [Unknown]
  - Disorientation [Unknown]
  - Product use in unapproved indication [Unknown]
